FAERS Safety Report 18166302 (Version 1)
Quarter: 2020Q3

REPORT INFORMATION
  Report Type: Spontaneous
  Country: FR (occurrence: FR)
  Receive Date: 20200819
  Receipt Date: 20200819
  Transmission Date: 20201103
  Serious: Yes (Other)
  Sender: FDA-Public Use
  Company Number: FR-TEVA-2020-FR-1815030

PATIENT
  Age: 73 Year
  Sex: Female

DRUGS (6)
  1. GLICLAZIDE [Concomitant]
     Active Substance: GLICLAZIDE
     Indication: DIABETES MELLITUS
     Route: 065
  2. LETROZOLE. [Concomitant]
     Active Substance: LETROZOLE
     Indication: HORMONE RECEPTOR POSITIVE BREAST CANCER
     Route: 065
  3. SAXAGLIPTIN [Concomitant]
     Active Substance: SAXAGLIPTIN
     Indication: DIABETES MELLITUS
     Route: 065
  4. METFORMIN [Suspect]
     Active Substance: METFORMIN HYDROCHLORIDE
     Indication: DIABETES MELLITUS
     Dosage: 3000 MILLIGRAM DAILY;
     Route: 048
  5. INSULIN [Concomitant]
     Active Substance: INSULIN NOS
     Indication: DIABETES MELLITUS
     Route: 065
  6. ABEMACICLIB [Interacting]
     Active Substance: ABEMACICLIB
     Indication: HORMONE RECEPTOR POSITIVE BREAST CANCER
     Dosage: 300 MILLIGRAM DAILY;
     Route: 065

REACTIONS (4)
  - Renal tubular necrosis [Recovered/Resolved]
  - Drug interaction [Recovered/Resolved]
  - Diarrhoea [Unknown]
  - Acute kidney injury [Recovered/Resolved]
